FAERS Safety Report 8492410-0 (Version None)
Quarter: 2012Q3

REPORT INFORMATION
  Report Type: 
  Country: None (occurrence: None)
  Receive Date: 20120706
  Receipt Date: 20120626
  Transmission Date: 20120928
  Serious: Yes (Hospitalization, Other)
  Sender: FDA-Public Use
  Company Number: BR-ROCHE-1084247

PATIENT
  Sex: Female
  Weight: 103 kg

DRUGS (7)
  1. BEROTEC [Concomitant]
  2. COMBIVENT [Concomitant]
  3. ALBUTEROL [Concomitant]
  4. XOLAIR [Suspect]
     Indication: ASTHMA
     Route: 058
     Dates: start: 20080101, end: 20120605
  5. FORMOTEROL FUMARATE [Suspect]
     Dosage: 1 INHALATION AT LUNCH 1 AT NIGHT
  6. FORMOTEROL FUMARATE [Suspect]
     Indication: ASTHMA
     Dosage: 1 INHALATION AT AM AND 2 AT PM
     Dates: start: 20050101
  7. KETOTIFEN FUMARATE [Concomitant]

REACTIONS (2)
  - DIABETES MELLITUS [None]
  - ASTHMA [None]
